FAERS Safety Report 5255103-9 (Version None)
Quarter: 2007Q1

REPORT INFORMATION
  Report Type: 
  Country: None (occurrence: None)
  Receive Date: 20070305
  Receipt Date: 20070221
  Transmission Date: 20070707
  Serious: Yes (Death)
  Sender: FDA-Public Use
  Company Number: GB-AVENTIS-200710814EU

PATIENT

DRUGS (1)
  1. CLEXANE [Suspect]

REACTIONS (2)
  - HAEMORRHAGE INTRACRANIAL [None]
  - OFF LABEL USE [None]
